FAERS Safety Report 4800074-X (Version None)
Quarter: 2005Q4

REPORT INFORMATION
  Report Type: 
  Country: None (occurrence: None)
  Receive Date: 20051012
  Receipt Date: 20051012
  Transmission Date: 20060501
  Serious: Yes (Other)
  Sender: FDA-Public Use
  Company Number: None

PATIENT
  Age: 64 Year
  Sex: Female
  Weight: 54.4316 kg

DRUGS (5)
  1. SIMVASTATIN [Suspect]
     Indication: DYSLIPIDAEMIA
     Dosage: 40 MG PO DAILY
     Route: 048
     Dates: start: 20050801, end: 20050901
  2. TOPROL-XL [Concomitant]
  3. TRAZODONE HCL [Concomitant]
  4. PREVACID [Concomitant]
  5. PAROXETINE HCL [Concomitant]

REACTIONS (2)
  - BURNING SENSATION [None]
  - LIMB DISCOMFORT [None]
